FAERS Safety Report 5282301-0 (Version None)
Quarter: 2007Q1

REPORT INFORMATION
  Report Type: 
  Country: None (occurrence: None)
  Receive Date: 20070331
  Receipt Date: 20070320
  Transmission Date: 20070707
  Serious: Yes (Other)
  Sender: FDA-Public Use
  Company Number: FR-PFIZER INC-2007023837

PATIENT
  Sex: Male

DRUGS (2)
  1. CHAMPIX [Suspect]
     Indication: EX-SMOKER
     Dates: start: 20070101, end: 20070319
  2. ALCOHOL [Suspect]

REACTIONS (3)
  - DELIRIUM [None]
  - FEELING JITTERY [None]
  - HOMICIDAL IDEATION [None]
